FAERS Safety Report 21916424 (Version 1)
Quarter: 2023Q1

REPORT INFORMATION
  Report Type: Spontaneous
  Country: US (occurrence: US)
  Receive Date: 20230126
  Receipt Date: 20230126
  Transmission Date: 20230418
  Serious: No
  Sender: FDA-Public Use
  Company Number: US-PFIZER INC-202300031205

PATIENT
  Age: 86 Year
  Sex: Female
  Weight: 63.5 kg

DRUGS (1)
  1. VYNDAMAX [Suspect]
     Active Substance: TAFAMIDIS
     Indication: Cardiac amyloidosis
     Dosage: 61 MG, 1X/DAY
     Dates: start: 20221104

REACTIONS (3)
  - Paraesthesia [Unknown]
  - Burning sensation [Unknown]
  - Condition aggravated [Unknown]
